FAERS Safety Report 23685692 (Version 1)
Quarter: 2024Q1

REPORT INFORMATION
  Report Type: Spontaneous
  Country: CA (occurrence: CA)
  Receive Date: 20240329
  Receipt Date: 20240329
  Transmission Date: 20240409
  Serious: Yes (Hospitalization, Other)
  Sender: FDA-Public Use
  Company Number: CA-FreseniusKabi-FK202404736

PATIENT
  Age: 71 Year
  Sex: Male

DRUGS (4)
  1. BLEOMYCIN [Suspect]
     Active Substance: BLEOMYCIN SULFATE
     Indication: Hodgkin^s disease
     Dosage: FOUR CYCLES OF ADRIAMYCIN, BLEOMYCIN, VINBLASTINE, AND DACARBAZINE (ABVD) FOLLOWED BY ISRT.?CYCLE IA
  2. ADRIAMYCIN [Suspect]
     Active Substance: DOXORUBICIN HYDROCHLORIDE
     Indication: Hodgkin^s disease
     Dosage: FOUR CYCLES OF ADRIAMYCIN, BLEOMYCIN, VINBLASTINE, AND DACARBAZINE (ABVD) FOLLOWED BY ISRT.?CYCLE IA
  3. VINBLASTINE [Suspect]
     Active Substance: VINBLASTINE
     Indication: Hodgkin^s disease
     Dosage: FOUR CYCLES OF ADRIAMYCIN, BLEOMYCIN, VINBLASTINE, AND DACARBAZINE (ABVD) FOLLOWED BY ISRT.?CYCLE IA
  4. DACARBAZINE [Suspect]
     Active Substance: DACARBAZINE
     Indication: Hodgkin^s disease
     Dosage: FOUR CYCLES OF ADRIAMYCIN, BLEOMYCIN, VINBLASTINE, AND DACARBAZINE (ABVD) FOLLOWED BY ISRT.?CYCLE IA

REACTIONS (4)
  - Febrile neutropenia [Unknown]
  - Malaise [Unknown]
  - Quality of life decreased [Unknown]
  - Fatigue [Unknown]
